FAERS Safety Report 8950821 (Version 1)
Quarter: 2012Q4

REPORT INFORMATION
  Report Type: Spontaneous
  Country: US (occurrence: None)
  Receive Date: 20121128
  Receipt Date: 20121128
  Transmission Date: 20130627
  Serious: Yes (Other)
  Sender: FDA-Public Use
  Company Number: LMI-2012-00288

PATIENT
  Age: 53 Year
  Sex: Female

DRUGS (4)
  1. DEFINITY [Suspect]
     Dosage: 1 vial of Definity diluted in 9 mL normal saline
     Dates: start: 20120910, end: 20120910
  2. DEFINITY [Suspect]
     Dosage: 1 vial of Definity diluted in 9 mL normal saline
     Dates: start: 20120910, end: 20120910
  3. DEFINITY [Suspect]
     Route: 040
  4. DEFINITY [Suspect]
     Route: 040

REACTIONS (3)
  - Dyspnoea [None]
  - Oxygen saturation decreased [None]
  - Cyanosis [None]
